FAERS Safety Report 4504652-7 (Version None)
Quarter: 2004Q4

REPORT INFORMATION
  Report Type: 
  Country: None (occurrence: None)
  Receive Date: 20041116
  Receipt Date: 20041027
  Transmission Date: 20050328
  Serious: Yes (Hospitalization)
  Sender: FDA-Public Use
  Company Number: DSA_25061_2004

PATIENT
  Age: 76 Year
  Sex: Male

DRUGS (1)
  1. TEVETEN [Suspect]
     Indication: HYPERTENSION
     Dosage: DF UNK PO
     Route: 048
     Dates: start: 20040526, end: 20040630

REACTIONS (1)
  - MYOCARDIAL INFARCTION [None]
